FAERS Safety Report 24020305 (Version 1)
Quarter: 2024Q2

REPORT INFORMATION
  Report Type: Spontaneous
  Country: US (occurrence: US)
  Receive Date: 20240627
  Receipt Date: 20240627
  Transmission Date: 20240716
  Serious: Yes (Hospitalization, Disabling, Other)
  Sender: FDA-Public Use
  Company Number: US-SANDOZ-SDZ2024US060994

PATIENT
  Age: 49 Year
  Sex: Female

DRUGS (1)
  1. PHENTERMINE [Suspect]
     Active Substance: PHENTERMINE
     Indication: Weight decreased
     Dosage: 37.5 MG, QD
     Route: 065

REACTIONS (1)
  - Retinal artery occlusion [Not Recovered/Not Resolved]
